FAERS Safety Report 5131341-0 (Version None)
Quarter: 2006Q4

REPORT INFORMATION
  Report Type: 
  Country: None (occurrence: None)
  Receive Date: 20061016
  Receipt Date: 20061003
  Transmission Date: 20070319
  Serious: Yes (Other)
  Sender: FDA-Public Use
  Company Number: 2006121984

PATIENT
  Sex: Male

DRUGS (2)
  1. CEREBYX [Suspect]
  2. DILANTIN [Suspect]

REACTIONS (1)
  - ANTICONVULSANT DRUG LEVEL INCREASED [None]
